FAERS Safety Report 6162207-5 (Version None)
Quarter: 2009Q2

REPORT INFORMATION
  Report Type: 
  Country: None (occurrence: None)
  Receive Date: 20090417
  Receipt Date: 20090406
  Transmission Date: 20091009
  Serious: Yes (Other)
  Sender: FDA-Public Use
  Company Number: 1000004847

PATIENT
  Age: 61 Year
  Sex: Female
  Weight: 57 kg

DRUGS (7)
  1. ESCITALOPRAM [Suspect]
     Indication: ANXIETY
     Dosage: 10 MG (10 MG, 1 IN 1 D), ORAL
     Route: 048
     Dates: start: 20090201, end: 20090203
  2. ESCITALOPRAM [Suspect]
     Indication: DEPRESSION
     Dosage: 10 MG (10 MG, 1 IN 1 D), ORAL
     Route: 048
     Dates: start: 20090201, end: 20090203
  3. PARIET [Suspect]
     Indication: GASTRODUODENAL ULCER
     Dosage: 20 MG (20 MG, 1 IN 1 D), ORAL
     Route: 048
     Dates: start: 20090202, end: 20090203
  4. LORAZEPAM [Concomitant]
  5. ZOLPIDEM TARTRATE [Concomitant]
  6. AVLOCARDYL [Concomitant]
  7. COLCHICINE [Concomitant]

REACTIONS (2)
  - CONJUNCTIVAL HAEMORRHAGE [None]
  - EPISCLERITIS [None]
